FAERS Safety Report 9845185 (Version 3)
Quarter: 2014Q1

REPORT INFORMATION
  Report Type: Spontaneous
  Country: US (occurrence: US)
  Receive Date: 20140127
  Receipt Date: 20140210
  Transmission Date: 20141002
  Serious: Yes (Other)
  Sender: FDA-Public Use
  Company Number: US-BEH-2013039750

PATIENT
  Age: 4 Year
  Sex: Female

DRUGS (1)
  1. HIZENTRA [Suspect]
     Indication: HYPOGAMMAGLOBULINAEMIA
     Dosage: 1 GM/5 ML; 15 ML WEEKLY
     Route: 058
     Dates: start: 20131226

REACTIONS (9)
  - Type IV hypersensitivity reaction [Recovered/Resolved]
  - Viral rash [Recovered/Resolved]
  - Rash maculo-papular [Recovered/Resolved]
  - Rash maculo-papular [Recovered/Resolved]
  - Lip swelling [Recovered/Resolved]
  - Pruritus [Recovered/Resolved]
  - Throat irritation [Recovered/Resolved]
  - Tongue disorder [Recovered/Resolved]
  - Urticaria [Recovered/Resolved]
